FAERS Safety Report 4731904-8 (Version None)
Quarter: 2005Q3

REPORT INFORMATION
  Report Type: 
  Country: None (occurrence: None)
  Receive Date: 20050802
  Receipt Date: 20050722
  Transmission Date: 20060218
  Serious: Yes (Hospitalization)
  Sender: FDA-Public Use
  Company Number: US-JNJFOC-20050705111

PATIENT
  Sex: Female

DRUGS (3)
  1. DURAGESIC-100 [Suspect]
     Route: 062
  2. DURAGESIC-100 [Suspect]
     Route: 062
  3. MORPHINE [Concomitant]
     Indication: PAIN

REACTIONS (6)
  - BLOOD POTASSIUM DECREASED [None]
  - CHEST DISCOMFORT [None]
  - CHOKING [None]
  - FOAMING AT MOUTH [None]
  - OESOPHAGITIS [None]
  - RHONCHI [None]
